FAERS Safety Report 7823866-1 (Version None)
Quarter: 2011Q4

REPORT INFORMATION
  Report Type: 
  Country: None (occurrence: None)
  Receive Date: 20111019
  Receipt Date: 20111018
  Transmission Date: 20120403
  Serious: Yes (Death)
  Sender: FDA-Public Use
  Company Number: PHHY2011AT85402

PATIENT
  Age: 17 Month

DRUGS (1)
  1. TRILEPTAL [Suspect]
     Indication: EPILEPSY
     Dosage: 1 ML, QD
     Route: 048

REACTIONS (1)
  - MYOCARDIAL ISCHAEMIA [None]
